FAERS Safety Report 5334130-7 (Version None)
Quarter: 2007Q2

REPORT INFORMATION
  Report Type: 
  Country: None (occurrence: None)
  Receive Date: 20070525
  Receipt Date: 20070516
  Transmission Date: 20071010
  Serious: Yes (Other)
  Sender: FDA-Public Use
  Company Number: GBWYE181510OCT06

PATIENT
  Sex: Female

DRUGS (3)
  1. VENLAFAXIINE HCL [Suspect]
     Indication: DEPRESSION
     Route: 048
     Dates: start: 20041220, end: 20060902
  2. VENLAFAXIINE HCL [Suspect]
     Route: 048
     Dates: start: 20060902
  3. PROPRANOLOL [Concomitant]
     Dates: start: 20050413

REACTIONS (1)
  - DRUG EXPOSURE DURING PREGNANCY [None]
